FAERS Safety Report 7333244-X (Version None)
Quarter: 2011Q1

REPORT INFORMATION
  Report Type: 
  Country: None (occurrence: None)
  Receive Date: 20110224
  Receipt Date: 20110215
  Transmission Date: 20110831
  Serious: Yes (Hospitalization)
  Sender: FDA-Public Use
  Company Number: 2010SP063542

PATIENT
  Age: 3 Year
  Sex: Male

DRUGS (4)
  1. TOPOTECAN [Suspect]
     Indication: NEOPLASM
     Dosage: 470 MG;QD;IV, 480 MG;QD;IV
     Route: 042
     Dates: start: 20101116, end: 20101120
  2. TOPOTECAN [Suspect]
     Indication: NEOPLASM
     Dosage: 470 MG;QD;IV, 480 MG;QD;IV
     Route: 042
     Dates: start: 20110207, end: 20110210
  3. TEMODAL [Suspect]
     Indication: NEOPLASM
     Dosage: 95 MG;QD;PO, 95 MG;QD;PO
     Route: 048
     Dates: start: 20101116, end: 20101120
  4. TEMODAL [Suspect]
     Indication: NEOPLASM
     Dosage: 95 MG;QD;PO, 95 MG;QD;PO
     Route: 048
     Dates: start: 20110207, end: 20110210

REACTIONS (10)
  - NEUTROPHIL COUNT ABNORMAL [None]
  - BLOOD DISORDER [None]
  - PLATELET COUNT DECREASED [None]
  - INFECTION [None]
  - BRONCHITIS [None]
  - FEBRILE BONE MARROW APLASIA [None]
  - WHITE BLOOD CELL COUNT DECREASED [None]
  - HAEMOGLOBIN DECREASED [None]
  - DEVICE RELATED INFECTION [None]
  - STAPHYLOCOCCAL INFECTION [None]
